FAERS Safety Report 8419863-8 (Version None)
Quarter: 2012Q2

REPORT INFORMATION
  Report Type: 
  Country: None (occurrence: None)
  Receive Date: 20120607
  Receipt Date: 20120601
  Transmission Date: 20120825
  Serious: Yes (Other)
  Sender: FDA-Public Use
  Company Number: TR-ABBOTT-12P-161-0941393-00

PATIENT
  Age: 56 Year
  Sex: Female

DRUGS (2)
  1. DMARD [Concomitant]
     Indication: PRODUCT USED FOR UNKNOWN INDICATION
  2. HUMIRA [Suspect]
     Indication: PRODUCT USED FOR UNKNOWN INDICATION

REACTIONS (2)
  - MYCOBACTERIUM TEST POSITIVE [None]
  - TUBERCULIN TEST POSITIVE [None]
